FAERS Safety Report 18407998 (Version 1)
Quarter: 2020Q4

REPORT INFORMATION
  Report Type: Spontaneous
  Country: NL (occurrence: NL)
  Receive Date: 20201020
  Receipt Date: 20201020
  Transmission Date: 20210114
  Serious: Yes (Other)
  Sender: FDA-Public Use
  Company Number: NL-ALLERGAN-2039843US

PATIENT
  Sex: Female
  Weight: 66 kg

DRUGS (5)
  1. FOSFOMYCIN TROMETHAMINE - BP [Suspect]
     Active Substance: FOSFOMYCIN TROMETHAMINE
     Dosage: OD FOR TWO DAYS FOLLOWED BY 1 SACHET EVERY 5TH DAY
     Route: 065
     Dates: start: 20200708
  2. FOSFOMYCIN TROMETHAMINE - BP [Suspect]
     Active Substance: FOSFOMYCIN TROMETHAMINE
     Dosage: OD FOR TWO DAYS FOLLOWED BY 1 SACHET EVERY 5TH DAY
     Route: 065
     Dates: start: 20200826
  3. FOSFOMYCIN TROMETHAMINE - BP [Suspect]
     Active Substance: FOSFOMYCIN TROMETHAMINE
     Indication: CYSTITIS
     Dosage: OD 1 EVERY FIFTHS 5 DAY, 3 G, AS OF 3/9/2020 EACH 5TH OR 6TH DAY 1 SACHET
     Route: 065
     Dates: start: 20200903
  4. METOPROLOL SUCCINATE. [Concomitant]
     Active Substance: METOPROLOL SUCCINATE
     Dosage: UNK
  5. FOSFOMYCIN TROMETHAMINE - BP [Suspect]
     Active Substance: FOSFOMYCIN TROMETHAMINE
     Dosage: OD FOR TWO DAYS FOLLOWED BY 1 SACHET EVERY 5TH DAY
     Route: 065
     Dates: start: 20200802

REACTIONS (4)
  - Product prescribing issue [Unknown]
  - Paraesthesia [Not Recovered/Not Resolved]
  - Neuropathy peripheral [Not Recovered/Not Resolved]
  - Hypoaesthesia [Not Recovered/Not Resolved]

NARRATIVE: CASE EVENT DATE: 20200923
